FAERS Safety Report 16618776 (Version 1)
Quarter: 2019Q3

REPORT INFORMATION
  Report Type: Spontaneous
  Country: CM (occurrence: CM)
  Receive Date: 20190723
  Receipt Date: 20190723
  Transmission Date: 20191004
  Serious: Yes (Other)
  Sender: FDA-Public Use
  Company Number: PHHY2019CM165111

PATIENT
  Age: 36 Year
  Sex: Female

DRUGS (1)
  1. BENZYLPENICILLIN [Suspect]
     Active Substance: PENICILLIN G
     Indication: PAIN
     Route: 065

REACTIONS (7)
  - Wound [Recovered/Resolved]
  - Nerve compression [Unknown]
  - Skin discolouration [Unknown]
  - Injection site pain [Unknown]
  - Product use in unapproved indication [Unknown]
  - Muscle necrosis [Unknown]
  - Embolia cutis medicamentosa [Unknown]
